FAERS Safety Report 22851679 (Version 3)
Quarter: 2023Q4

REPORT INFORMATION
  Report Type: Report from Study
  Country: CA (occurrence: CA)
  Receive Date: 20230823
  Receipt Date: 20231107
  Transmission Date: 20240110
  Serious: Yes (Hospitalization, Other)
  Sender: FDA-Public Use
  Company Number: CA-CELLTRION INC.-2023CA016383

PATIENT

DRUGS (21)
  1. RITUXIMAB [Suspect]
     Active Substance: RITUXIMAB
     Indication: Rheumatoid arthritis
     Dosage: 1000 MG 1 EVERY 3 MONTHS
     Route: 042
  2. RITUXIMAB [Suspect]
     Active Substance: RITUXIMAB
     Indication: Connective tissue disorder
     Dosage: 1000 MG
     Route: 042
  3. ACETAMINOPHEN [Concomitant]
     Active Substance: ACETAMINOPHEN
     Dosage: 1000 MG
     Route: 048
  4. ALTACE [Concomitant]
     Active Substance: RAMIPRIL
  5. ATORVASTATIN [Concomitant]
     Active Substance: ATORVASTATIN
     Route: 048
  6. AZATHIOPRINE [Concomitant]
     Active Substance: AZATHIOPRINE
  7. CALCIUM [Concomitant]
     Active Substance: CALCIUM
  8. CYCLOBENZAPRINE HYDROCHLORIDE [Concomitant]
     Active Substance: CYCLOBENZAPRINE HYDROCHLORIDE
  9. DIPHENHYDRAMINE [Concomitant]
     Active Substance: DIPHENHYDRAMINE
     Dosage: 50 MG
     Route: 048
  10. ESCITALOPRAM OXALATE [Concomitant]
     Active Substance: ESCITALOPRAM OXALATE
  11. HYDROCHLOROTHIAZIDE [Concomitant]
     Active Substance: HYDROCHLOROTHIAZIDE
  12. METHOTREXATE [Concomitant]
     Active Substance: METHOTREXATE
     Route: 048
  13. NITROFURANTOIN [Concomitant]
     Active Substance: NITROFURANTOIN
  14. DOCONEXENT\ICOSAPENT [Concomitant]
     Active Substance: DOCONEXENT\ICOSAPENT
  15. PREDNISONE [Concomitant]
     Active Substance: PREDNISONE
     Dosage: 50 MG
     Route: 048
  16. RAMIPRIL [Concomitant]
     Active Substance: RAMIPRIL
  17. RYBELSUS [Concomitant]
     Active Substance: SEMAGLUTIDE
     Route: 048
  18. SYNTHROID [Concomitant]
     Active Substance: LEVOTHYROXINE SODIUM
  19. UBIDECARENONE [Concomitant]
     Active Substance: UBIDECARENONE
  20. VENTOLIN [Concomitant]
     Active Substance: ALBUTEROL SULFATE
  21. VITAMIN C [Concomitant]
     Active Substance: ASCORBIC ACID

REACTIONS (8)
  - Gastrointestinal inflammation [Recovering/Resolving]
  - Poor venous access [Recovering/Resolving]
  - Heart rate decreased [Recovering/Resolving]
  - Appendicitis [Recovering/Resolving]
  - Salpingo-oophoritis [Recovering/Resolving]
  - Infection [Recovering/Resolving]
  - Intentional product use issue [Unknown]
  - Intentional product use issue [Unknown]
